FAERS Safety Report 6562179-5 (Version None)
Quarter: 2010Q1

REPORT INFORMATION
  Report Type: 
  Country: None (occurrence: None)
  Receive Date: 20100130
  Receipt Date: 20091104
  Transmission Date: 20100710
  Serious: No
  Sender: FDA-Public Use
  Company Number: US-ABBOTT-09P-163-0607394-00

PATIENT
  Sex: Female

DRUGS (3)
  1. HUMIRA [Suspect]
     Indication: CROHN'S DISEASE
     Route: 058
     Dates: start: 20080401, end: 20081201
  2. HUMIRA [Suspect]
     Route: 058
     Dates: start: 20081201, end: 20090401
  3. HUMIRA [Suspect]
     Route: 058
     Dates: start: 20090601

REACTIONS (8)
  - BRONCHIAL WALL THICKENING [None]
  - BRONCHITIS [None]
  - COUGH [None]
  - CROHN'S DISEASE [None]
  - LYMPHADENOPATHY [None]
  - MUSCULOSKELETAL CHEST PAIN [None]
  - SKELETAL INJURY [None]
  - TUBERCULIN TEST POSITIVE [None]
